FAERS Safety Report 18957276 (Version 1)
Quarter: 2021Q1

REPORT INFORMATION
  Report Type: Spontaneous
  Country: US (occurrence: US)
  Receive Date: 20210302
  Receipt Date: 20210302
  Transmission Date: 20210420
  Serious: Yes (Other)
  Sender: FDA-Public Use
  Company Number: US-PFIZER INC-2001080932US

PATIENT
  Age: 79 Year
  Sex: Male

DRUGS (17)
  1. CELEBREX [Interacting]
     Active Substance: CELECOXIB
     Dosage: 100 MG, FOR 3 WEEKS TIME IN THE WEEK
     Dates: start: 19991108, end: 19991114
  2. TRIAMCINOLONE ACETONIDE. [Concomitant]
     Active Substance: TRIAMCINOLONE ACETONIDE
     Dosage: UNK, 2X/DAY (TWO PUFFS TWICE DAILY)
     Route: 055
  3. WARFARIN [Interacting]
     Active Substance: WARFARIN
     Dosage: 35 MG, WEEKLY
     Dates: start: 19991228, end: 20000124
  4. VITAMIN K1 [Concomitant]
     Active Substance: PHYTONADIONE
     Dosage: UNK
     Dates: start: 19990621, end: 20000110
  5. VERAPAMIL [Concomitant]
     Active Substance: VERAPAMIL HYDROCHLORIDE
     Dosage: 240 MG, 1X/DAY (EXTENDED?RELEASE)
     Dates: start: 19990520
  6. VITAMIN K1 [Concomitant]
     Active Substance: PHYTONADIONE
     Dosage: UNK
     Dates: start: 19990607, end: 19990620
  7. CELEBREX [Suspect]
     Active Substance: CELECOXIB
     Indication: ATRIAL FIBRILLATION
     Dosage: 100 MG, 1X/DAY
     Dates: start: 19990605, end: 19991107
  8. ALBUTEROL HFA [Concomitant]
     Active Substance: ALBUTEROL SULFATE
     Dosage: FOUR PUFFS DAILY AS NEEDED
     Route: 055
  9. VITAMIN K1 [Concomitant]
     Active Substance: PHYTONADIONE
     Dosage: UNK
     Dates: start: 19990520, end: 19990606
  10. WARFARIN [Interacting]
     Active Substance: WARFARIN
     Indication: ATRIAL FIBRILLATION
     Dosage: 38.5 MG, WEEKLY
     Dates: start: 19990520, end: 19991227
  11. DIGOXIN. [Concomitant]
     Active Substance: DIGOXIN
     Dosage: 0.25 MG, 1X/DAY
  12. SALMETEROL XINAFOATE [Concomitant]
     Active Substance: SALMETEROL XINAFOATE
     Dosage: UNK, 2X/DAY (INHALER TWO PUFFS TWICE DAILY)
     Route: 055
  13. CELEBREX [Interacting]
     Active Substance: CELECOXIB
     Dosage: 100 MG, 1X/DAY
     Dates: start: 19991115
  14. LOSARTAN POTASSIUM. [Concomitant]
     Active Substance: LOSARTAN POTASSIUM
     Dosage: 100 MG, 1X/DAY
     Dates: start: 19990520
  15. VITAMIN K1 [Concomitant]
     Active Substance: PHYTONADIONE
     Dosage: UNK
     Dates: start: 20000111, end: 20000215
  16. VITAMIN K1 [Concomitant]
     Active Substance: PHYTONADIONE
     Dosage: UNK
     Dates: start: 20000216
  17. WARFARIN [Interacting]
     Active Substance: WARFARIN
     Dosage: 31.5 MG, WEEKLY
     Dates: start: 20000125

REACTIONS (2)
  - International normalised ratio increased [Recovered/Resolved]
  - Drug interaction [Recovered/Resolved]
